FAERS Safety Report 7449527-9 (Version None)
Quarter: 2011Q2

REPORT INFORMATION
  Report Type: 
  Country: None (occurrence: None)
  Receive Date: 20110502
  Receipt Date: 20110408
  Transmission Date: 20111010
  Serious: No
  Sender: FDA-Public Use
  Company Number: US-BAYER-2011-031563

PATIENT
  Age: 52 Year
  Sex: Female

DRUGS (3)
  1. STRATTERA [Concomitant]
  2. DAILY VITAMINS [Concomitant]
  3. ALEVE (CAPLET) [Suspect]
     Dosage: 2 DF, BID, BOTTLE COUNT 200CT
     Route: 048
     Dates: start: 20090201

REACTIONS (1)
  - NO ADVERSE EVENT [None]
